FAERS Safety Report 5669804-1 (Version None)
Quarter: 2008Q1

REPORT INFORMATION
  Report Type: 
  Country: None (occurrence: None)
  Receive Date: 20080314
  Receipt Date: 20080314
  Transmission Date: 20080703
  Serious: Yes (Death, Hospitalization)
  Sender: FDA-Public Use
  Company Number: None

PATIENT
  Age: 34 Year
  Sex: Male
  Weight: 104 kg

DRUGS (1)
  1. ZYPREXA [Suspect]
     Indication: BIPOLAR DISORDER
     Dosage: ORAL  LAST 3-5 YEARS
     Route: 048

REACTIONS (8)
  - ABDOMINAL COMPARTMENT SYNDROME [None]
  - DISSEMINATED INTRAVASCULAR COAGULATION [None]
  - HAEMODIALYSIS [None]
  - HYPERTRIGLYCERIDAEMIA [None]
  - HYPOTENSION [None]
  - ISCHAEMIC HEPATITIS [None]
  - METABOLIC ACIDOSIS [None]
  - PANCREATITIS [None]
